FAERS Safety Report 18507216 (Version 1)
Quarter: 2020Q4

REPORT INFORMATION
  Report Type: Spontaneous
  Country: US (occurrence: US)
  Receive Date: 20201113
  Receipt Date: 20201113
  Transmission Date: 20210114
  Serious: No
  Sender: FDA-Public Use
  Company Number: None

PATIENT
  Age: 73 Year
  Sex: Female

DRUGS (8)
  1. ALEVE, [Concomitant]
  2. VITAMIN D3 [Concomitant]
     Active Substance: CHOLECALCIFEROL
  3. AMLODIPINE, [Concomitant]
  4. CALCIUM CHW, [Concomitant]
  5. PRILOSEC, [Concomitant]
  6. ESBRIET [Suspect]
     Active Substance: PIRFENIDONE
     Indication: IDIOPATHIC PULMONARY FIBROSIS
     Dosage: ?          OTHER DOSE:2 CAPS;?
     Route: 048
     Dates: start: 20190725
  7. LOSARTAN AND HYDROCHLOROTHIAZIDE [Concomitant]
     Active Substance: HYDROCHLOROTHIAZIDE\LOSARTAN POTASSIUM
  8. MUCINEX, [Concomitant]

REACTIONS (4)
  - Burning sensation [None]
  - Gastrooesophageal reflux disease [None]
  - Post procedural complication [None]
  - Oesophageal obstruction [None]

NARRATIVE: CASE EVENT DATE: 20201012
